FAERS Safety Report 4779942-3 (Version None)
Quarter: 2005Q3

REPORT INFORMATION
  Report Type: 
  Country: None (occurrence: None)
  Receive Date: 20050927
  Receipt Date: 20050923
  Transmission Date: 20060218
  Serious: Yes (Life-Threatening, Hospitalization, Disabling, Other)
  Sender: FDA-Public Use
  Company Number: US-GLAXOSMITHKLINE-A0575688A

PATIENT
  Age: 33 Year
  Sex: Female

DRUGS (3)
  1. LAMICTAL [Suspect]
     Indication: EPILEPSY
     Dosage: 100MG TWICE PER DAY
     Route: 048
  2. TRICOR [Suspect]
  3. TRICOR [Concomitant]

REACTIONS (2)
  - BLOOD AMYLASE INCREASED [None]
  - PANCREATITIS ACUTE [None]
